FAERS Safety Report 6482132-X (Version None)
Quarter: 2009Q4

REPORT INFORMATION
  Report Type: 
  Country: None (occurrence: None)
  Receive Date: 20091208
  Receipt Date: 20090409
  Transmission Date: 20100525
  Serious: No
  Sender: FDA-Public Use
  Company Number: US-AMGEN-KDL342411

PATIENT
  Sex: Female

DRUGS (2)
  1. ENBREL [Suspect]
     Indication: RHEUMATOID ARTHRITIS
     Route: 058
     Dates: start: 20090328
  2. METHOTREXATE [Concomitant]
     Route: 048

REACTIONS (4)
  - FATIGUE [None]
  - LYMPHADENOPATHY [None]
  - NASAL CONGESTION [None]
  - OROPHARYNGEAL PAIN [None]
